FAERS Safety Report 6181128-5 (Version None)
Quarter: 2009Q2

REPORT INFORMATION
  Report Type: 
  Country: None (occurrence: None)
  Receive Date: 20090504
  Receipt Date: 20090504
  Transmission Date: 20091009
  Serious: Yes (Life-Threatening, Hospitalization, Other)
  Sender: FDA-Public Use
  Company Number: None

PATIENT
  Age: 56 Year
  Sex: Female
  Weight: 80.7403 kg

DRUGS (2)
  1. METOPROPOLOL SUCCINATE 100MG ETHEX [Suspect]
     Indication: ATRIAL TACHYCARDIA
     Dosage: 100MG THREE TIMES DAY PO
     Route: 048
     Dates: start: 20070515, end: 20090202
  2. METOPROPOLOL SUCCINATE 100MG BARR [Suspect]
     Dosage: 100MG THREE TIMES DAY PO
     Route: 048

REACTIONS (9)
  - ARRHYTHMIA [None]
  - ATRIAL TACHYCARDIA [None]
  - DIZZINESS [None]
  - DYSPNOEA [None]
  - EXERCISE TOLERANCE DECREASED [None]
  - FLUID RETENTION [None]
  - POOR QUALITY SLEEP [None]
  - PRODUCT SUBSTITUTION ISSUE [None]
  - VENTRICULAR EXTRASYSTOLES [None]
